FAERS Safety Report 9143858 (Version 2)
Quarter: 2013Q4

REPORT INFORMATION
  Report Type: Spontaneous
  Country: GB (occurrence: GB)
  Receive Date: 20130306
  Receipt Date: 20131007
  Transmission Date: 20140711
  Serious: Yes (Death, Other)
  Sender: FDA-Public Use
  Company Number: PHHY2013GB021543

PATIENT
  Age: 40 Year
  Sex: Female
  Weight: 68 kg

DRUGS (3)
  1. VENLAFAXINE [Suspect]
  2. TRAMADOL [Interacting]
  3. AMITRIPTYLIN [Interacting]

REACTIONS (2)
  - Death [Fatal]
  - Drug interaction [Not Recovered/Not Resolved]
